FAERS Safety Report 24822297 (Version 1)
Quarter: 2025Q1

REPORT INFORMATION
  Report Type: Spontaneous
  Country: CN (occurrence: CN)
  Receive Date: 20250108
  Receipt Date: 20250108
  Transmission Date: 20250408
  Serious: Yes (Hospitalization)
  Sender: BEIGENE
  Company Number: CN-BEIGENE-BGN-2025-000010

PATIENT

DRUGS (6)
  1. TISLELIZUMAB [Suspect]
     Active Substance: TISLELIZUMAB
     Indication: Metastases to lung
     Route: 041
     Dates: start: 20240402
  2. NEDAPLATIN [Suspect]
     Active Substance: NEDAPLATIN
     Indication: Metastases to lung
     Route: 041
     Dates: start: 20240403
  3. PACLITAXEL [Suspect]
     Active Substance: PACLITAXEL
     Indication: Metastases to lung
     Route: 041
     Dates: start: 20240402
  4. SODIUM CHLORIDE [Concomitant]
     Active Substance: SODIUM CHLORIDE
     Indication: Vehicle solution use
     Route: 041
     Dates: start: 20240402
  5. SODIUM CHLORIDE [Concomitant]
     Active Substance: SODIUM CHLORIDE
     Route: 041
     Dates: start: 20240402
  6. SODIUM CHLORIDE [Concomitant]
     Active Substance: SODIUM CHLORIDE
     Route: 041
     Dates: start: 20240403

REACTIONS (3)
  - Myelosuppression [Recovering/Resolving]
  - Haemoptysis [Unknown]
  - Fatigue [Unknown]

NARRATIVE: CASE EVENT DATE: 20240404
